FAERS Safety Report 11488696 (Version 1)
Quarter: 2015Q3

REPORT INFORMATION
  Report Type: Spontaneous
  Country: US (occurrence: US)
  Receive Date: 20150910
  Receipt Date: 20150910
  Transmission Date: 20151125
  Serious: No
  Sender: FDA-Public Use
  Company Number: US-ROCHE-1469377

PATIENT
  Age: 62 Year
  Sex: Female

DRUGS (6)
  1. RIBAVIRIN. [Suspect]
     Active Substance: RIBAVIRIN
     Dosage: 2 AM, 2 PM
     Route: 048
     Dates: start: 20140902, end: 20141003
  2. RIBAVIRIN. [Suspect]
     Active Substance: RIBAVIRIN
     Route: 048
     Dates: start: 20141030
  3. SOVALDI [Suspect]
     Active Substance: SOFOSBUVIR
     Indication: HEPATITIS C
     Route: 048
     Dates: start: 20140818
  4. PEGASYS [Suspect]
     Active Substance: PEGINTERFERON ALFA-2A
     Indication: HEPATITIS C
     Route: 058
     Dates: start: 20140818, end: 20140930
  5. RIBAVIRIN. [Suspect]
     Active Substance: RIBAVIRIN
     Indication: HEPATITIS C
     Dosage: 3 AM, 2 PM
     Route: 048
     Dates: start: 20140818
  6. VITAMIN C [Concomitant]
     Active Substance: ASCORBIC ACID
     Indication: ORNITHINE TRANSCARBAMOYLASE DEFICIENCY
     Route: 048

REACTIONS (2)
  - Anaemia [Unknown]
  - Retinal exudates [Unknown]

NARRATIVE: CASE EVENT DATE: 20141001
